FAERS Safety Report 12915815 (Version 1)
Quarter: 2016Q4

REPORT INFORMATION
  Report Type: Spontaneous
  Country: US (occurrence: US)
  Receive Date: 20161107
  Receipt Date: 20161107
  Transmission Date: 20170207
  Serious: No
  Sender: FDA-Public Use
  Company Number: US-AUROBINDO-AUR-APL-2015-11870

PATIENT
  Sex: Female

DRUGS (3)
  1. METOPROLOL. [Suspect]
     Active Substance: METOPROLOL
     Indication: HEART RATE IRREGULAR
     Route: 065
  2. NADOLOL. [Suspect]
     Active Substance: NADOLOL
     Indication: HEART RATE IRREGULAR
     Dosage: 20 MG, HALF A PILL ONCE A DAY
     Route: 065
  3. CORGARD [Suspect]
     Active Substance: NADOLOL
     Indication: HEART RATE IRREGULAR
     Dosage: HALF A TABLET, DAILY
     Route: 048
     Dates: start: 1990

REACTIONS (3)
  - Lethargy [Unknown]
  - Heart rate increased [Unknown]
  - Drug ineffective [Unknown]
